FAERS Safety Report 23744023 (Version 1)
Quarter: 2024Q2

REPORT INFORMATION
  Report Type: Spontaneous
  Country: US (occurrence: US)
  Receive Date: 20240415
  Receipt Date: 20240415
  Transmission Date: 20240716
  Serious: No
  Sender: FDA-Public Use
  Company Number: US-SA-SAC20240411000464

PATIENT
  Sex: Male

DRUGS (12)
  1. DUPIXENT [Suspect]
     Active Substance: DUPILUMAB
     Indication: Neurodermatitis
     Dosage: 300 MG, QOW
     Route: 058
     Dates: start: 20230208
  2. ALLOPURINOL [Concomitant]
     Active Substance: ALLOPURINOL
  3. AMBIEN [Concomitant]
     Active Substance: ZOLPIDEM TARTRATE
  4. CARISOPRODOL [Concomitant]
     Active Substance: CARISOPRODOL
  5. COZAAR [Concomitant]
     Active Substance: LOSARTAN POTASSIUM
  6. DIGOXIN [Concomitant]
     Active Substance: DIGOXIN
  7. IPRATROPIUM [Concomitant]
     Active Substance: IPRATROPIUM
  8. LIPITOR [Concomitant]
     Active Substance: ATORVASTATIN CALCIUM
  9. PREDNISONE [Concomitant]
     Active Substance: PREDNISONE
  10. VERAPAMIL [Concomitant]
     Active Substance: VERAPAMIL HYDROCHLORIDE
  11. WARFARIN [Concomitant]
     Active Substance: WARFARIN
  12. HYDROXYZINE HYDROCHLORIDE [Concomitant]
     Active Substance: HYDROXYZINE HYDROCHLORIDE

REACTIONS (1)
  - Sleep disorder [Unknown]
